FAERS Safety Report 14141709 (Version 1)
Quarter: 2017Q4

REPORT INFORMATION
  Report Type: Spontaneous
  Country: US (occurrence: US)
  Receive Date: 20171029
  Receipt Date: 20171029
  Transmission Date: 20180321
  Serious: Yes (Disabling, Other)
  Sender: FDA-Public Use
  Company Number: None

PATIENT
  Age: 33 Year
  Sex: Male
  Weight: 67.5 kg

DRUGS (5)
  1. METRONIDAZOLE 500 MG [Suspect]
     Active Substance: METRONIDAZOLE
     Indication: CLOSTRIDIUM DIFFICILE INFECTION
     Dosage: ?          QUANTITY:42 TABLET(S); EVERY 8 HOUS ORAL?
     Route: 048
  2. SINGULAIR [Concomitant]
     Active Substance: MONTELUKAST SODIUM
  3. CLARITIN-D 24 HOUR [Concomitant]
     Active Substance: LORATADINE\PSEUDOEPHEDRINE SULFATE
  4. PROBIOTIC [Concomitant]
     Active Substance: PROBIOTICS NOS
  5. CENTRUM ADULT MULTIVITAMIN [Concomitant]

REACTIONS (2)
  - Dysgeusia [None]
  - Arthralgia [None]

NARRATIVE: CASE EVENT DATE: 20170916
